FAERS Safety Report 6149749-3 (Version None)
Quarter: 2009Q2

REPORT INFORMATION
  Report Type: 
  Country: None (occurrence: None)
  Receive Date: 20090409
  Receipt Date: 20090326
  Transmission Date: 20091009
  Serious: Yes (Hospitalization)
  Sender: FDA-Public Use
  Company Number: PHHY2009MX10650

PATIENT
  Age: 63 Year
  Sex: Female

DRUGS (3)
  1. GALVUS [Suspect]
     Indication: DIABETES MELLITUS
     Dosage: 1 TABLET PER DAY
     Route: 048
  2. EXFORGE [Suspect]
     Indication: HYPERTENSION
     Dosage: UNK
     Dates: start: 20080101
  3. INSULIN [Concomitant]

REACTIONS (9)
  - BLOOD GLUCOSE INCREASED [None]
  - CARDIOMEGALY [None]
  - CONSTIPATION [None]
  - GASTROINTESTINAL INFECTION [None]
  - HYPERTENSION [None]
  - KIDNEY INFECTION [None]
  - PNEUMONIA [None]
  - URINARY TRACT INFECTION [None]
  - VOMITING [None]
